FAERS Safety Report 24587780 (Version 1)
Quarter: 2024Q4

REPORT INFORMATION
  Report Type: Report from Study
  Country: US (occurrence: US)
  Receive Date: 20241107
  Receipt Date: 20241107
  Transmission Date: 20250114
  Serious: Yes (Other)
  Sender: ROCHE
  Company Number: US-ROCHE-10000125023

PATIENT

DRUGS (1)
  1. XOLAIR [Suspect]
     Active Substance: OMALIZUMAB
     Indication: Product used for unknown indication
     Route: 065

REACTIONS (7)
  - Ill-defined disorder [Unknown]
  - Feeling cold [Unknown]
  - Depression [Unknown]
  - Crying [Unknown]
  - Hypoaesthesia [Unknown]
  - Pain [Unknown]
  - Anaphylactic shock [Unknown]
